FAERS Safety Report 20205904 (Version 1)
Quarter: 2021Q4

REPORT INFORMATION
  Report Type: Spontaneous
  Country: IL (occurrence: IL)
  Receive Date: 20211220
  Receipt Date: 20211220
  Transmission Date: 20220303
  Serious: Yes (Other)
  Sender: FDA-Public Use
  Company Number: IL-NOVARTISPH-NVSC2021IL283317

PATIENT
  Age: 58 Year
  Sex: Female

DRUGS (1)
  1. EXJADE [Suspect]
     Active Substance: DEFERASIROX
     Indication: Product used for unknown indication
     Dosage: UNK (DOSE 500+250)
     Route: 065

REACTIONS (6)
  - Conjunctivitis [Unknown]
  - Conjunctival hyperaemia [Unknown]
  - Eye pain [Unknown]
  - Eye pruritus [Unknown]
  - Nasal mucosal ulcer [Unknown]
  - Stomatitis [Unknown]
